FAERS Safety Report 15861609 (Version 1)
Quarter: 2019Q1

REPORT INFORMATION
  Report Type: Spontaneous
  Country: GB (occurrence: GB)
  Receive Date: 20190124
  Receipt Date: 20190124
  Transmission Date: 20190417
  Serious: Yes (Hospitalization)
  Sender: FDA-Public Use
  Company Number: GB-ACCORD-093127

PATIENT
  Age: 70 Year
  Sex: Male
  Weight: 85.72 kg

DRUGS (2)
  1. QUETIAPINE. [Suspect]
     Active Substance: QUETIAPINE
     Indication: DEMENTIA
     Route: 048
     Dates: start: 20170804
  2. RIVASTIGMINE. [Suspect]
     Active Substance: RIVASTIGMINE
     Indication: DEMENTIA
     Route: 048
     Dates: start: 20170804

REACTIONS (8)
  - Fall [Unknown]
  - Hallucination [Recovering/Resolving]
  - Somnambulism [Unknown]
  - Insomnia [Recovering/Resolving]
  - Bradycardia [Recovering/Resolving]
  - Constipation [Recovering/Resolving]
  - Dizziness [Recovering/Resolving]
  - Urinary tract obstruction [Recovering/Resolving]

NARRATIVE: CASE EVENT DATE: 20170804
